FAERS Safety Report 8812666 (Version 1)
Quarter: 2012Q4

REPORT INFORMATION
  Report Type: 
  Country: BR (occurrence: BR)
  Receive Date: 20120927
  Receipt Date: 20120927
  Transmission Date: 20130627
  Serious: Yes (Other)
  Sender: FDA-Public Use
  Company Number: PHHY2012BR082764

PATIENT
  Sex: Male

DRUGS (7)
  1. METFORMIN [Suspect]
     Dosage: 1700 mg/day
  2. GLIMEPIRIDE [Suspect]
     Dosage: 2 mg/day
  3. SIMVASTATIN [Suspect]
     Dosage: 20 mg/day
  4. RAMIPRIL [Suspect]
     Dosage: 5 mg/day
  5. ANCORON [Suspect]
     Dosage: 10 mg/day
  6. ACETYLSALICYLIC ACID [Concomitant]
     Dosage: 100 mg/day
  7. METOPROLOL SUCCINATE [Concomitant]
     Dosage: 500 mg/day

REACTIONS (3)
  - Coronary artery occlusion [Recovered/Resolved]
  - Arrhythmia [Recovered/Resolved]
  - Asthenia [Recovered/Resolved]
